FAERS Safety Report 10635784 (Version 4)
Quarter: 2015Q1

REPORT INFORMATION
  Report Type: Spontaneous
  Country: US (occurrence: US)
  Receive Date: 20141205
  Receipt Date: 20150315
  Transmission Date: 20150720
  Serious: Yes (Hospitalization, Congenital Anomaly, Other)
  Sender: FDA-Public Use
  Company Number: US-ELI_LILLY_AND_COMPANY-US201406008589

PATIENT

DRUGS (1)
  1. PROZAC [Suspect]
     Active Substance: FLUOXETINE HYDROCHLORIDE
     Indication: PRODUCT USED FOR UNKNOWN INDICATION
     Dosage: UNK, UNKNOWN
     Route: 064

REACTIONS (15)
  - Dysphagia [Recovered/Resolved]
  - Atypical pneumonia [Unknown]
  - Cyanosis [Recovered/Resolved]
  - Congenital flat feet [Not Recovered/Not Resolved]
  - Pneumonia [Recovered/Resolved]
  - Foetal exposure during pregnancy [Recovered/Resolved]
  - Post procedural cellulitis [Recovered/Resolved]
  - Laryngeal stenosis [Not Recovered/Not Resolved]
  - Hydrocele [Unknown]
  - Tracheomalacia [Not Recovered/Not Resolved]
  - Tracheal fistula [Recovered/Resolved]
  - Large for dates baby [Unknown]
  - Gastrointestinal disorder [Unknown]
  - Gastrooesophageal reflux disease [Recovered/Resolved]
  - Inguinal hernia [Recovered/Resolved]
